FAERS Safety Report 7044346-X (Version None)
Quarter: 2010Q4

REPORT INFORMATION
  Report Type: 
  Country: None (occurrence: None)
  Receive Date: 20101014
  Receipt Date: 20101005
  Transmission Date: 20110411
  Serious: Yes (Death, Other)
  Sender: FDA-Public Use
  Company Number: US-TEVA-250632USA

PATIENT
  Age: 46 Year
  Sex: Male

DRUGS (3)
  1. DOXEPIN HYDROCHLORIDE 10 MG/ML SOLUTION [Suspect]
  2. MIRTAZAPINE [Suspect]
  3. CYCLOBENZAPRINE HCL [Suspect]

REACTIONS (3)
  - AGITATION [None]
  - DELIRIUM [None]
  - SCHIZOAFFECTIVE DISORDER [None]
